FAERS Safety Report 10436054 (Version 1)
Quarter: 2014Q3

REPORT INFORMATION
  Report Type: Spontaneous
  Country: US (occurrence: US)
  Receive Date: 20140908
  Receipt Date: 20140908
  Transmission Date: 20150326
  Serious: No
  Sender: FDA-Public Use
  Company Number: US-GLAXOSMITHKLINE-A1084564A

PATIENT

DRUGS (5)
  1. BREO ELLIPTA [Suspect]
     Active Substance: FLUTICASONE FUROATE\VILANTEROL TRIFENATATE
     Indication: CHRONIC OBSTRUCTIVE PULMONARY DISEASE
     Route: 055
     Dates: start: 20140719
  2. SALINE ORAL DROPS [Concomitant]
  3. HALOPERIDOL. [Concomitant]
     Active Substance: HALOPERIDOL
  4. BENZTROPINE [Concomitant]
     Active Substance: BENZTROPINE
  5. BREO ELLIPTA [Suspect]
     Active Substance: FLUTICASONE FUROATE\VILANTEROL TRIFENATATE
     Dates: start: 20140719

REACTIONS (5)
  - Oropharyngeal pain [Unknown]
  - Dry mouth [Unknown]
  - Dyspnoea [Unknown]
  - Tremor [Unknown]
  - Oropharyngeal discomfort [Not Recovered/Not Resolved]

NARRATIVE: CASE EVENT DATE: 2014
